FAERS Safety Report 18135288 (Version 1)
Quarter: 2020Q3

REPORT INFORMATION
  Report Type: Spontaneous
  Country: US (occurrence: US)
  Receive Date: 20200811
  Receipt Date: 20200811
  Transmission Date: 20201103
  Serious: Yes (Life-Threatening, Hospitalization)
  Sender: FDA-Public Use
  Company Number: US-AVION PHARMACEUTICALS, LLC-2088456

PATIENT
  Age: 33 Year
  Sex: Female

DRUGS (1)
  1. GLOPERBA [Suspect]
     Active Substance: COLCHICINE
     Indication: OVERDOSE
     Route: 048

REACTIONS (11)
  - Hypotension [Recovering/Resolving]
  - Renal failure [Recovering/Resolving]
  - Sepsis [None]
  - Cardiogenic shock [Recovering/Resolving]
  - Paralysis [Recovering/Resolving]
  - Hypokinesia [Recovering/Resolving]
  - Acute respiratory distress syndrome [Recovering/Resolving]
  - Multi-organ disorder [Recovering/Resolving]
  - Diarrhoea [Recovering/Resolving]
  - Neutropenia [Recovering/Resolving]
  - Hepatic necrosis [Recovering/Resolving]
